FAERS Safety Report 7458870-9 (Version None)
Quarter: 2011Q2

REPORT INFORMATION
  Report Type: 
  Country: None (occurrence: None)
  Receive Date: 20110504
  Receipt Date: 20110422
  Transmission Date: 20111010
  Serious: Yes (Other)
  Sender: FDA-Public Use
  Company Number: PHHY2011US24058

PATIENT
  Sex: Male

DRUGS (10)
  1. FOLIC ACID [Concomitant]
  2. GLEEVEC [Suspect]
     Indication: CHRONIC MYELOID LEUKAEMIA
     Dosage: 400 MG, DAILY
     Route: 048
     Dates: start: 20090301
  3. METOPROLOL SUCCINATE [Concomitant]
  4. POTASSIUM CITRATE [Concomitant]
  5. LOVAZA [Concomitant]
  6. ALLOPURINOL [Concomitant]
  7. TOPROL-XL [Concomitant]
  8. LIPITOR [Concomitant]
  9. QUINAPRIL [Concomitant]
  10. UROCIT [Concomitant]

REACTIONS (6)
  - HAEMATURIA [None]
  - FAECES DISCOLOURED [None]
  - DIARRHOEA [None]
  - NEPHROLITHIASIS [None]
  - HAEMATOSPERMIA [None]
  - ERYTHEMA [None]
